FAERS Safety Report 9846451 (Version 1)
Quarter: 2014Q1

REPORT INFORMATION
  Report Type: Spontaneous
  Country: FR (occurrence: FR)
  Receive Date: 20140127
  Receipt Date: 20140127
  Transmission Date: 20141002
  Serious: Yes (Other)
  Sender: FDA-Public Use
  Company Number: FR-INCYTE CORPORATION-2014IN000155

PATIENT
  Age: 75 Year
  Sex: Male

DRUGS (2)
  1. JAKAVI [Suspect]
     Indication: MYELOFIBROSIS
     Dosage: UNK,UNK,UNK
     Route: 065
  2. JAKAVI [Suspect]
     Dosage: UNK,UNK,UNK
     Route: 065

REACTIONS (1)
  - Renal disorder [Unknown]
